FAERS Safety Report 5009910-8 (Version None)
Quarter: 2006Q2

REPORT INFORMATION
  Report Type: 
  Country: None (occurrence: None)
  Receive Date: 20060522
  Receipt Date: 20060509
  Transmission Date: 20061013
  Serious: Yes (Other)
  Sender: FDA-Public Use
  Company Number: 2005S1000265

PATIENT
  Age: 39 Year
  Sex: Female

DRUGS (2)
  1. ACITRETIN [Suspect]
     Dosage: 40 MG;QD;PO
     Route: 048
     Dates: start: 20040601, end: 20050601
  2. ORAL CONTRACEPTIVE [Concomitant]

REACTIONS (3)
  - CAESAREAN SECTION [None]
  - DRUG EXPOSURE DURING PREGNANCY [None]
  - PREGNANCY ON ORAL CONTRACEPTIVE [None]
